FAERS Safety Report 16089774 (Version 2)
Quarter: 2019Q2

REPORT INFORMATION
  Report Type: Spontaneous
  Country: JP (occurrence: JP)
  Receive Date: 20190319
  Receipt Date: 20190521
  Transmission Date: 20190711
  Serious: Yes (Other)
  Sender: FDA-Public Use
  Company Number: JP-ROCHE-2286166

PATIENT
  Age: 8 Year
  Sex: Male

DRUGS (6)
  1. CLARITIN REDITABS [Concomitant]
     Active Substance: LORATADINE
     Indication: RHINORRHOEA
     Route: 065
     Dates: start: 20181202, end: 20181206
  2. MUCODYNE [Concomitant]
     Active Substance: CARBOCYSTEINE
     Indication: COUGH
  3. XOFLUZA [Suspect]
     Active Substance: BALOXAVIR MARBOXIL
     Indication: INFLUENZA
     Route: 048
     Dates: start: 20181202, end: 20181202
  4. CLARITIN REDITABS [Concomitant]
     Active Substance: LORATADINE
     Indication: COUGH
  5. TRANSAMIN [Concomitant]
     Active Substance: TRANEXAMIC ACID
     Indication: OROPHARYNGEAL PAIN
     Route: 048
     Dates: start: 20181202, end: 20181206
  6. MUCODYNE [Concomitant]
     Active Substance: CARBOCYSTEINE
     Indication: RHINORRHOEA
     Route: 048
     Dates: start: 20181202, end: 20181206

REACTIONS (1)
  - Tonic convulsion [Recovered/Resolved]

NARRATIVE: CASE EVENT DATE: 20181202
